FAERS Safety Report 8505550-4 (Version None)
Quarter: 2012Q3

REPORT INFORMATION
  Report Type: 
  Country: None (occurrence: None)
  Receive Date: 20120712
  Receipt Date: 20120702
  Transmission Date: 20120928
  Serious: Yes (Disabling)
  Sender: FDA-Public Use
  Company Number: JP-ELI_LILLY_AND_COMPANY-JP201203001242

PATIENT
  Age: 70 Year
  Sex: Female

DRUGS (12)
  1. MUCOSTA [Concomitant]
     Dosage: UNK, PRN
     Route: 048
  2. EVISTA [Suspect]
     Route: 048
  3. KETOPROFEN [Concomitant]
     Route: 062
  4. EVISTA [Suspect]
     Dosage: 60 MG, EACH MORNING
     Route: 048
     Dates: start: 20120201
  5. DIOVAN [Concomitant]
     Route: 048
  6. MINODRONIC ACID [Concomitant]
     Dosage: UNK, MONTHLY (1/M)
  7. NORVASC [Concomitant]
     Route: 048
  8. ALINAMIN F [Concomitant]
     Route: 048
  9. VITAMIN B12 [Concomitant]
  10. VALSARTAN/HYDROCHLOORTHIAZIDE [Concomitant]
     Route: 048
  11. RIZABEN [Concomitant]
     Route: 048
  12. LOXONIN [Concomitant]
     Dosage: UNK, PRN
     Route: 048

REACTIONS (1)
  - ALOPECIA [None]
